FAERS Safety Report 8376688-X (Version None)
Quarter: 2012Q2

REPORT INFORMATION
  Report Type: 
  Country: None (occurrence: None)
  Receive Date: 20120522
  Receipt Date: 20120517
  Transmission Date: 20120825
  Serious: Yes (Death, Other)
  Sender: FDA-Public Use
  Company Number: AU-SANOFI-AVENTIS-2012SA035177

PATIENT
  Age: 60 Year
  Sex: Female

DRUGS (1)
  1. PLAQUENIL [Suspect]
     Indication: RHEUMATOID ARTHRITIS
     Route: 065

REACTIONS (2)
  - DEATH [None]
  - THROMBOCYTOPENIA [None]
